FAERS Safety Report 8242165-X (Version None)
Quarter: 2012Q1

REPORT INFORMATION
  Report Type: 
  Country: None (occurrence: None)
  Receive Date: 20120314
  Receipt Date: 20110506
  Transmission Date: 20120608
  Serious: No
  Sender: FDA-Public Use
  Company Number: PHHY2011US40229

PATIENT

DRUGS (1)
  1. FANAPT [Suspect]

REACTIONS (1)
  - SEASONAL ALLERGY [None]
